FAERS Safety Report 23384775 (Version 3)
Quarter: 2024Q1

REPORT INFORMATION
  Report Type: Report from Study
  Country: US (occurrence: US)
  Receive Date: 20240109
  Receipt Date: 20240222
  Transmission Date: 20240410
  Serious: Yes (Life-Threatening, Hospitalization)
  Sender: FDA-Public Use
  Company Number: US-JNJFOC-20240104087

PATIENT
  Age: 52 Year
  Sex: Female
  Weight: 89.9 kg

DRUGS (13)
  1. SPRAVATO [Suspect]
     Active Substance: ESKETAMINE
     Indication: Depression
     Dosage: ^56 MG, 1 TOTAL DOSE^
     Dates: start: 20231018, end: 20231018
  2. SPRAVATO [Suspect]
     Active Substance: ESKETAMINE
     Indication: Major depression
     Dosage: ^84 MG, 13 TOTAL DOSES^
     Dates: start: 20231020, end: 20231220
  3. SPRAVATO [Suspect]
     Active Substance: ESKETAMINE
     Dates: start: 20240103
  4. PHENELZINE [Suspect]
     Active Substance: PHENELZINE
     Indication: Major depression
     Route: 048
     Dates: end: 20231222
  5. PHENELZINE [Suspect]
     Active Substance: PHENELZINE
     Route: 048
     Dates: start: 20231230
  6. PHENELZINE [Suspect]
     Active Substance: PHENELZINE
     Dosage: CURRENT DOSE
     Route: 048
  7. NARDIL [Concomitant]
     Active Substance: PHENELZINE SULFATE
     Indication: Product used for unknown indication
     Route: 065
  8. CLONAZEPAM [Concomitant]
     Active Substance: CLONAZEPAM
     Indication: Insomnia
     Route: 048
  9. GABAPENTIN [Concomitant]
     Active Substance: GABAPENTIN
     Indication: Insomnia
     Dosage: 200MG; 300-600 MG NIGHTLY
     Route: 048
  10. LAVENDER OIL [Concomitant]
     Active Substance: LAVENDER OIL
     Indication: Major depression
     Route: 048
  11. LEVOTHYROXINE [Concomitant]
     Active Substance: LEVOTHYROXINE\LEVOTHYROXINE SODIUM
     Indication: Hypothyroidism
     Route: 048
  12. TIRZEPATIDE [Concomitant]
     Active Substance: TIRZEPATIDE
     Indication: Weight decreased
     Route: 030
  13. MELATONIN [Concomitant]
     Active Substance: MELATONIN
     Indication: Insomnia
     Route: 048

REACTIONS (2)
  - Posterior reversible encephalopathy syndrome [Recovered/Resolved]
  - Hypertension [Recovered/Resolved]

NARRATIVE: CASE EVENT DATE: 20231201
